FAERS Safety Report 9773665 (Version 1)
Quarter: 2013Q4

REPORT INFORMATION
  Report Type: Spontaneous
  Country: US (occurrence: US)
  Receive Date: 20131219
  Receipt Date: 20131219
  Transmission Date: 20140711
  Serious: Yes (Hospitalization)
  Sender: FDA-Public Use
  Company Number: US-BAXTER-2013BAX018050

PATIENT
  Sex: 0

DRUGS (1)
  1. BREVIBLOC PREMIXED INJECTION (ESMOLOL HYDROCHLORIDE) [Suspect]
     Indication: PRODUCT USED FOR UNKNOWN INDICATION
     Route: 013
     Dates: start: 20130513, end: 20130513

REACTIONS (2)
  - Incorrect route of drug administration [Unknown]
  - No adverse event [Recovered/Resolved]
